FAERS Safety Report 11246014 (Version 1)
Quarter: 2015Q3

REPORT INFORMATION
  Report Type: Spontaneous
  Country: US (occurrence: US)
  Receive Date: 20150708
  Receipt Date: 20150708
  Transmission Date: 20151125
  Serious: Yes (Other)
  Sender: FDA-Public Use
  Company Number: US-PAR PHARMACEUTICAL, INC-2015SCPR014111

PATIENT

DRUGS (1)
  1. DISULFIRAM. [Suspect]
     Active Substance: DISULFIRAM
     Indication: ALCOHOLISM
     Dosage: UNK UNK, UNKNOWN
     Route: 065
     Dates: start: 2013

REACTIONS (5)
  - Neurotoxicity [Unknown]
  - Central nervous system lesion [Unknown]
  - Toxicity to various agents [Unknown]
  - Gait disturbance [Recovering/Resolving]
  - Peripheral sensorimotor neuropathy [Recovering/Resolving]
